FAERS Safety Report 5160014-3 (Version None)
Quarter: 2006Q4

REPORT INFORMATION
  Report Type: 
  Country: None (occurrence: None)
  Receive Date: 20061129
  Receipt Date: 20060629
  Transmission Date: 20070319
  Serious: No
  Sender: FDA-Public Use
  Company Number: US-GLAXOSMITHKLINE-A0610799A

PATIENT
  Age: 45 Year
  Sex: Female

DRUGS (5)
  1. WELLBUTRIN SR [Suspect]
     Route: 048
     Dates: start: 20040101
  2. AVONEX [Concomitant]
  3. MULTI-VITAMIN [Concomitant]
  4. GARLIC [Concomitant]
  5. FISH OIL [Concomitant]

REACTIONS (1)
  - DRUG INEFFECTIVE [None]
